FAERS Safety Report 23602427 (Version 1)
Quarter: 2024Q1

REPORT INFORMATION
  Report Type: Spontaneous
  Country: CA (occurrence: CA)
  Receive Date: 20240306
  Receipt Date: 20240306
  Transmission Date: 20240410
  Serious: Yes (Other)
  Sender: FDA-Public Use
  Company Number: CA-BIOMARINAP-CA-2024-156257

PATIENT

DRUGS (5)
  1. VIMIZIM [Suspect]
     Active Substance: ELOSULFASE ALFA
     Indication: Mucopolysaccharidosis IV
     Dosage: 2 MILLIGRAM/KILOGRAM, QW
     Route: 042
     Dates: start: 20160223
  2. TYLENOL [Concomitant]
     Active Substance: ACETAMINOPHEN
     Indication: Premedication
     Dosage: 325 MILLIGRAM, SINGLE
     Route: 048
  3. Reactine [Concomitant]
     Indication: Premedication
     Dosage: 5 MILLIGRAM, SINGLE
     Route: 048
  4. RIVOTRIL [Concomitant]
     Active Substance: CLONAZEPAM
     Indication: Panic attack
     Dosage: UNK, BID
     Route: 065
  5. RIVOTRIL [Concomitant]
     Active Substance: CLONAZEPAM
     Dosage: UNK, PRN
     Route: 065

REACTIONS (1)
  - Wheelchair user [Unknown]
